FAERS Safety Report 8883602 (Version 1)
Quarter: 2012Q4

REPORT INFORMATION
  Report Type: 
  Country: US (occurrence: US)
  Receive Date: 20121102
  Receipt Date: 20121102
  Transmission Date: 20130627
  Serious: No
  Sender: FDA-Public Use
  Company Number: US-PFIZER INC-2002069415

PATIENT
  Age: 54 Year
  Sex: Female

DRUGS (1)
  1. NEURONTIN [Suspect]
     Indication: PAIN IN EXTREMITY
     Dosage: UNK
     Dates: start: 20021111, end: 20021114

REACTIONS (2)
  - Hypersensitivity [Unknown]
  - Gait disturbance [Unknown]
